FAERS Safety Report 8128180-5 (Version None)
Quarter: 2011Q4

REPORT INFORMATION
  Report Type: 
  Country: None (occurrence: None)
  Receive Date: 20111227
  Receipt Date: 20111107
  Transmission Date: 20120403
  Serious: No
  Sender: FDA-Public Use
  Company Number: PHHY2011US63859

PATIENT
  Age: 28 Year
  Sex: Female
  Weight: 67.1 kg

DRUGS (4)
  1. PAROXETINE HCL [Concomitant]
  2. PROTONIX [Concomitant]
  3. GILENYA [Suspect]
     Indication: MULTIPLE SCLEROSIS
     Dosage: 0.5 MG, QD, ORAL
     Route: 048
     Dates: start: 20110614
  4. ZOLPIDEM [Concomitant]

REACTIONS (4)
  - DIZZINESS [None]
  - DISTURBANCE IN ATTENTION [None]
  - FATIGUE [None]
  - NAUSEA [None]
